FAERS Safety Report 25292667 (Version 2)
Quarter: 2025Q2

REPORT INFORMATION
  Report Type: Spontaneous
  Country: US (occurrence: US)
  Receive Date: 20250510
  Receipt Date: 20250515
  Transmission Date: 20250716
  Serious: No
  Sender: SANOFI AVENTIS
  Company Number: US-SA-2025SA123416

PATIENT
  Age: 33 Year
  Sex: Female

DRUGS (2)
  1. DUPIXENT [Suspect]
     Active Substance: DUPILUMAB
     Indication: Eczema
     Route: 058
     Dates: start: 202503, end: 202503
  2. DUPIXENT [Suspect]
     Active Substance: DUPILUMAB
     Dosage: 300 MG, QOW
     Route: 058
     Dates: start: 2025

REACTIONS (7)
  - Cough [Unknown]
  - Eye discharge [Unknown]
  - Ocular hyperaemia [Unknown]
  - Injection site pain [Unknown]
  - Injection site swelling [Unknown]
  - Conjunctivitis [Unknown]
  - Eye disorder [Unknown]

NARRATIVE: CASE EVENT DATE: 20250101
